FAERS Safety Report 17359475 (Version 1)
Quarter: 2020Q1

REPORT INFORMATION
  Report Type: Spontaneous
  Country: CA (occurrence: CA)
  Receive Date: 20200203
  Receipt Date: 20200203
  Transmission Date: 20200409
  Serious: Yes (Hospitalization)
  Sender: FDA-Public Use
  Company Number: CA-ROCHE-2531147

PATIENT
  Age: 83 Year
  Sex: Female

DRUGS (40)
  1. FENTANYL. [Suspect]
     Active Substance: FENTANYL
     Indication: PRODUCT USED FOR UNKNOWN INDICATION
     Route: 065
  2. METHOTREXATE. [Suspect]
     Active Substance: METHOTREXATE
     Indication: RHEUMATOID ARTHRITIS
     Route: 058
  3. ORENCIA [Suspect]
     Active Substance: ABATACEPT
     Indication: RHEUMATOID ARTHRITIS
     Route: 042
  4. FERROUS FUMARATE [Concomitant]
     Active Substance: FERROUS FUMARATE
  5. RIBOFLAVIN [Concomitant]
     Active Substance: RIBOFLAVIN
  6. ARAVA [Suspect]
     Active Substance: LEFLUNOMIDE
     Indication: PRODUCT USED FOR UNKNOWN INDICATION
     Route: 048
  7. OXYCONTIN [Suspect]
     Active Substance: OXYCODONE HYDROCHLORIDE
     Indication: PRODUCT USED FOR UNKNOWN INDICATION
     Route: 065
  8. ACLASTA [Concomitant]
     Active Substance: ZOLEDRONIC ACID
     Route: 042
  9. ESOMEPRAZOLE. [Concomitant]
     Active Substance: ESOMEPRAZOLE MAGNESIUM
  10. SODIUM ASCORBATE [Concomitant]
     Active Substance: SODIUM ASCORBATE
  11. ACTEMRA [Suspect]
     Active Substance: TOCILIZUMAB
     Indication: RHEUMATOID ARTHRITIS
     Route: 042
  12. ACTONEL [Concomitant]
     Active Substance: RISEDRONATE SODIUM
  13. BIOTIN [Concomitant]
     Active Substance: BIOTIN
  14. FOLIC ACID. [Concomitant]
     Active Substance: FOLIC ACID
  15. GABAPENTIN. [Suspect]
     Active Substance: GABAPENTIN
     Indication: PRODUCT USED FOR UNKNOWN INDICATION
     Route: 048
  16. MYOCHRYSINE [Suspect]
     Active Substance: GOLD SODIUM THIOMALATE
     Indication: RHEUMATOID ARTHRITIS
     Route: 030
  17. SULFASALAZINE. [Suspect]
     Active Substance: SULFASALAZINE
     Indication: RHEUMATOID ARTHRITIS
     Route: 048
  18. ERGOCALCIFEROL. [Concomitant]
     Active Substance: ERGOCALCIFEROL
  19. PANTOPRAZOLE [Concomitant]
     Active Substance: PANTOPRAZOLE
  20. THIAMINE HYDROCHLORIDE. [Concomitant]
     Active Substance: THIAMINE HYDROCHLORIDE
  21. XELJANZ [Concomitant]
     Active Substance: TOFACITINIB CITRATE
  22. ENBREL [Suspect]
     Active Substance: ETANERCEPT
     Indication: RHEUMATOID ARTHRITIS
     Route: 065
  23. LOPERAMIDE [Concomitant]
     Active Substance: LOPERAMIDE
  24. NORTRIPTYLINE [Concomitant]
     Active Substance: NORTRIPTYLINE
  25. THIAMINE. [Concomitant]
     Active Substance: THIAMINE
  26. VITAMIN A [RETINOL] [Concomitant]
     Active Substance: RETINOL
  27. CELEBREX [Suspect]
     Active Substance: CELECOXIB
     Indication: RHEUMATOID ARTHRITIS
     Route: 046
  28. NASONEX [Concomitant]
     Active Substance: MOMETASONE FUROATE
  29. NICOTINAMIDE [Concomitant]
     Active Substance: NIACINAMIDE
  30. PREDNISONE. [Concomitant]
     Active Substance: PREDNISONE
  31. PYRIDOXINE [Concomitant]
     Active Substance: PYRIDOXINE
  32. TRAZODONE [Concomitant]
     Active Substance: TRAZODONE HYDROCHLORIDE
  33. VITAMIN C [Concomitant]
     Active Substance: ASCORBIC ACID
  34. D-ALPHA TOCOPHEROL [Concomitant]
     Active Substance: .ALPHA.-TOCOPHEROL, D-
  35. LOMOTIL [Concomitant]
     Active Substance: ATROPINE SULFATE\DIPHENOXYLATE HYDROCHLORIDE
  36. PLAQUENIL [Suspect]
     Active Substance: HYDROXYCHLOROQUINE SULFATE
     Indication: RHEUMATOID ARTHRITIS
     Route: 065
  37. FERROUS GLUCONATE [Concomitant]
     Active Substance: FERROUS GLUCONATE
  38. RETINOL PALMITATE [Concomitant]
     Active Substance: VITAMIN A PALMITATE
  39. TYLENOL [Concomitant]
     Active Substance: ACETAMINOPHEN
  40. VITAMIN B12 [Concomitant]
     Active Substance: CYANOCOBALAMIN

REACTIONS (24)
  - Diarrhoea [Unknown]
  - Dry eye [Unknown]
  - Skin lesion [Unknown]
  - Blood potassium increased [Unknown]
  - Cyst [Unknown]
  - Drug ineffective [Unknown]
  - Nausea [Unknown]
  - Osteopenia [Unknown]
  - Pleural fibrosis [Unknown]
  - Deafness neurosensory [Unknown]
  - Drug hypersensitivity [Unknown]
  - Epigastric discomfort [Unknown]
  - Fatigue [Unknown]
  - Osteoarthritis [Unknown]
  - Presbyacusis [Unknown]
  - Renal impairment [Unknown]
  - Treatment failure [Unknown]
  - Hypersensitivity [Unknown]
  - Blood creatinine increased [Unknown]
  - Blood magnesium increased [Unknown]
  - Drug intolerance [Unknown]
  - Pleural thickening [Unknown]
  - Gastrointestinal disorder [Unknown]
  - Infection [Unknown]
